FAERS Safety Report 23175604 (Version 1)
Quarter: 2023Q4

REPORT INFORMATION
  Report Type: Spontaneous
  Country: FR (occurrence: FR)
  Receive Date: 20231113
  Receipt Date: 20231113
  Transmission Date: 20240110
  Serious: Yes (Death)
  Sender: FDA-Public Use
  Company Number: FR-JNJFOC-20221155551

PATIENT
  Age: 67 Year
  Sex: Male

DRUGS (3)
  1. LENALIDOMIDE [Suspect]
     Active Substance: LENALIDOMIDE
     Indication: Plasma cell myeloma
     Dosage: UNK
     Route: 065
     Dates: end: 20210325
  2. VELCADE [Suspect]
     Active Substance: BORTEZOMIB
     Indication: Plasma cell myeloma
     Dosage: 1.3 MILLIGRAM/SQ. METER (2 WEEK(S)/CYCLE)
     Route: 065
     Dates: end: 20210325
  3. DEXAMETHASONE [Suspect]
     Active Substance: DEXAMETHASONE
     Indication: Plasma cell myeloma
     Dosage: 20 MILLIGRAM, EVERY WEEK (3 WEEK(S)/CYCLE)
     Route: 065
     Dates: end: 20210325

REACTIONS (6)
  - Malnutrition [Fatal]
  - Eschar [Fatal]
  - Osteitis [Fatal]
  - Sepsis [Fatal]
  - Off label use [Unknown]
  - Intentional product use issue [Unknown]
